FAERS Safety Report 19596546 (Version 2)
Quarter: 2021Q4

REPORT INFORMATION
  Report Type: Spontaneous
  Country: US (occurrence: US)
  Receive Date: 20210723
  Receipt Date: 20211012
  Transmission Date: 20220303
  Serious: Yes (Life-Threatening)
  Sender: FDA-Public Use
  Company Number: US-DRREDDYS-SPO/USA/21/0138138

PATIENT
  Age: 6 Decade
  Sex: Male

DRUGS (3)
  1. HEPARIN SODIUM [Suspect]
     Active Substance: HEPARIN SODIUM
     Indication: Product used for unknown indication
  2. LEUCOVORIN [Concomitant]
     Active Substance: LEUCOVORIN
     Indication: Hepatocellular carcinoma
     Dates: start: 202001
  3. FLUOROURACIL [Concomitant]
     Active Substance: FLUOROURACIL
     Indication: Hepatocellular carcinoma
     Dates: start: 202001

REACTIONS (1)
  - Heparin-induced thrombocytopenia [Recovered/Resolved]

NARRATIVE: CASE EVENT DATE: 20200101
